FAERS Safety Report 20551386 (Version 1)
Quarter: 2022Q1

REPORT INFORMATION
  Report Type: Spontaneous
  Country: HR (occurrence: HR)
  Receive Date: 20220304
  Receipt Date: 20220304
  Transmission Date: 20220423
  Serious: Yes (Hospitalization, Other)
  Sender: FDA-Public Use
  Company Number: None

PATIENT
  Sex: Female

DRUGS (5)
  1. ANDOL [Suspect]
     Active Substance: ASPIRIN
     Dosage: 1 TABLET
     Route: 048
  2. OXAZEPAM [Suspect]
     Active Substance: OXAZEPAM
     Dosage: 1 TABLET
     Route: 048
  3. METFORMIN HYDROCHLORIDE [Suspect]
     Active Substance: METFORMIN HYDROCHLORIDE
     Dosage: 1 TABLET
     Route: 048
  4. SULPIRIDE [Suspect]
     Active Substance: SULPIRIDE
     Route: 048
  5. KETOPROFEN [Suspect]
     Active Substance: KETOPROFEN
     Dosage: SEVERAL TABLETS
     Route: 048

REACTIONS (3)
  - Intentional overdose [Unknown]
  - Somnolence [Unknown]
  - Suicide attempt [Unknown]

NARRATIVE: CASE EVENT DATE: 20210815
